FAERS Safety Report 5378795-2 (Version None)
Quarter: 2007Q2

REPORT INFORMATION
  Report Type: 
  Country: None (occurrence: None)
  Receive Date: 20070530
  Receipt Date: 20070226
  Transmission Date: 20071010
  Serious: No
  Sender: FDA-Public Use
  Company Number: 2007PV030743

PATIENT
  Age: 67 Year
  Sex: Male

DRUGS (8)
  1. BYETTA [Suspect]
     Indication: DIABETES MELLITUS NON-INSULIN-DEPENDENT
     Dosage: 5 MCG; BID; SC
     Route: 058
     Dates: start: 20070223
  2. METFORMIN HCL [Concomitant]
  3. GLIPIZIDE [Concomitant]
  4. HIGH BLOOD PRESSURE [Concomitant]
  5. MEDICATIONS [Concomitant]
  6. LIPITOR [Concomitant]
  7. AVANDIA [Concomitant]
  8. ACTOS [Concomitant]

REACTIONS (1)
  - BLOOD GLUCOSE INCREASED [None]
